FAERS Safety Report 14213261 (Version 1)
Quarter: 2017Q4

REPORT INFORMATION
  Report Type: Spontaneous
  Country: US (occurrence: US)
  Receive Date: 20171122
  Receipt Date: 20171122
  Transmission Date: 20180321
  Serious: Yes (Other)
  Sender: FDA-Public Use
  Company Number: None

PATIENT
  Age: 44 Year
  Sex: Female
  Weight: 63.45 kg

DRUGS (1)
  1. EXTRA STRENGTH PAIN RELIEVER [Suspect]
     Active Substance: ACETAMINOPHEN
     Indication: HEADACHE
     Dosage: ?          QUANTITY:2 TABLET(S);?
     Route: 048
     Dates: start: 20171030, end: 20171117

REACTIONS (7)
  - Gait disturbance [None]
  - Vomiting projectile [None]
  - Dizziness [None]
  - Blood pressure immeasurable [None]
  - Hypersensitivity [None]
  - Nausea [None]
  - Vertigo [None]

NARRATIVE: CASE EVENT DATE: 20171117
